FAERS Safety Report 13954159 (Version 1)
Quarter: 2017Q3

REPORT INFORMATION
  Report Type: Spontaneous
  Country: US (occurrence: None)
  Receive Date: 20170908
  Receipt Date: 20170908
  Transmission Date: 20171128
  Serious: Yes (Hospitalization)
  Sender: FDA-Public Use
  Company Number: None

PATIENT
  Age: 71 Year
  Sex: Male
  Weight: 84.41 kg

DRUGS (2)
  1. LEUPROLIDE ACETATE. [Suspect]
     Active Substance: LEUPROLIDE ACETATE
     Dates: end: 20170816
  2. CASODEX [Suspect]
     Active Substance: BICALUTAMIDE
     Dates: end: 20170817

REACTIONS (9)
  - Vomiting [None]
  - Chills [None]
  - Tremor [None]
  - Dysuria [None]
  - Urinary retention [None]
  - Sepsis [None]
  - Urinary tract infection [None]
  - Nausea [None]
  - Retching [None]

NARRATIVE: CASE EVENT DATE: 20170818
